FAERS Safety Report 4611198-4 (Version None)
Quarter: 2005Q1

REPORT INFORMATION
  Report Type: 
  Country: None (occurrence: None)
  Receive Date: 20050314
  Receipt Date: 20040203
  Transmission Date: 20050727
  Serious: Yes (Hospitalization)
  Sender: FDA-Public Use
  Company Number: USA040258342

PATIENT
  Age: 41 Year
  Sex: Female

DRUGS (1)
  1. GEMZAR [Suspect]
     Indication: BREAST CANCER METASTATIC
     Dosage: 1740 MG
     Dates: start: 20040109, end: 20040126

REACTIONS (3)
  - CHILLS [None]
  - PNEUMONITIS [None]
  - PYREXIA [None]
